FAERS Safety Report 25675985 (Version 1)
Quarter: 2025Q3

REPORT INFORMATION
  Report Type: Spontaneous
  Country: US (occurrence: US)
  Receive Date: 20250813
  Receipt Date: 20250813
  Transmission Date: 20251020
  Serious: Yes (Life-Threatening, Hospitalization, Other)
  Sender: GLAND PHARMA LTD
  Company Number: US-GLANDPHARMA-US-2025GLNLIT01668

PATIENT
  Age: 30 Year
  Sex: Male

DRUGS (3)
  1. GEMCITABINE [Suspect]
     Active Substance: GEMCITABINE
     Indication: Extragonadal primary germ cell tumour
     Route: 065
  2. GEMCITABINE [Suspect]
     Active Substance: GEMCITABINE
     Indication: Metastases to lung
  3. OXALIPLATIN [Concomitant]
     Active Substance: OXALIPLATIN
     Route: 065

REACTIONS (3)
  - Pneumonitis [Unknown]
  - Acute respiratory failure [Unknown]
  - Product use in unapproved indication [Unknown]
